FAERS Safety Report 6279907-9 (Version None)
Quarter: 2009Q3

REPORT INFORMATION
  Report Type: 
  Country: None (occurrence: None)
  Receive Date: 20090723
  Receipt Date: 20090529
  Transmission Date: 20100115
  Serious: No
  Sender: FDA-Public Use
  Company Number: US-AMGEN-KDL349496

PATIENT
  Age: 29 Year
  Sex: Female

DRUGS (4)
  1. PROCRIT [Suspect]
     Indication: DRUG USE FOR UNKNOWN INDICATION
     Dates: start: 20090403
  2. TOPROL-XL [Concomitant]
  3. ALLEGRA [Concomitant]
  4. ALBUTEROL [Concomitant]

REACTIONS (1)
  - POLYMENORRHOEA [None]
